FAERS Safety Report 10210600 (Version 1)
Quarter: 2014Q2

REPORT INFORMATION
  Report Type: Spontaneous
  Country: US (occurrence: None)
  Receive Date: 20140529
  Receipt Date: 20140529
  Transmission Date: 20141212
  Serious: Yes (Hospitalization)
  Sender: FDA-Public Use
  Company Number: None

PATIENT
  Age: 67 Year
  Sex: Male

DRUGS (2)
  1. MORPHINE [Suspect]
     Indication: PAIN
     Route: 048
     Dates: start: 20130326, end: 20140426
  2. ACETAMINOPHEN/OXYCODONE [Suspect]
     Indication: PAIN
     Dosage: 2 TAB QID PO
     Route: 048
     Dates: start: 20131110, end: 20140426

REACTIONS (4)
  - Somnolence [None]
  - Respiratory depression [None]
  - Overdose [None]
  - Sedation [None]
